FAERS Safety Report 21707934 (Version 1)
Quarter: 2022Q4

REPORT INFORMATION
  Report Type: Spontaneous
  Country: US (occurrence: US)
  Receive Date: 20221209
  Receipt Date: 20221209
  Transmission Date: 20230113
  Serious: No
  Sender: FDA-Public Use
  Company Number: US-NEUROCRINE BIOSCIENCES INC.-2022NBI08715

PATIENT

DRUGS (6)
  1. INGREZZA [Suspect]
     Active Substance: VALBENAZINE
     Indication: Tardive dyskinesia
     Dosage: 40 MILLIGRAM
     Route: 048
     Dates: start: 20221109, end: 20221110
  2. QUETIAPINE [Concomitant]
     Active Substance: QUETIAPINE
  3. FLUVOXAMINE [Concomitant]
     Active Substance: FLUVOXAMINE
  4. DEPAKOTE [Concomitant]
     Active Substance: DIVALPROEX SODIUM
  5. CAPLYTA [Concomitant]
     Active Substance: LUMATEPERONE
  6. GABAPENTIN [Concomitant]
     Active Substance: GABAPENTIN

REACTIONS (3)
  - Tongue eruption [Unknown]
  - Swollen tongue [Unknown]
  - Drooling [Unknown]

NARRATIVE: CASE EVENT DATE: 20221101
